FAERS Safety Report 6937010-6 (Version None)
Quarter: 2010Q3

REPORT INFORMATION
  Report Type: 
  Country: None (occurrence: None)
  Receive Date: 20100823
  Receipt Date: 20100809
  Transmission Date: 20110219
  Serious: Yes (Other)
  Sender: FDA-Public Use
  Company Number: PHHY2010CA00883

PATIENT
  Sex: Female

DRUGS (1)
  1. DIOVAN [Suspect]
     Dosage: 160 MG, BID
     Route: 048

REACTIONS (4)
  - FIBROMYALGIA [None]
  - OSTEOPOROSIS [None]
  - PLANTAR FASCIITIS [None]
  - WEIGHT INCREASED [None]
